FAERS Safety Report 11050454 (Version 1)
Quarter: 2015Q2

REPORT INFORMATION
  Report Type: Spontaneous
  Country: US (occurrence: US)
  Receive Date: 20150421
  Receipt Date: 20150421
  Transmission Date: 20150821
  Serious: No
  Sender: FDA-Public Use
  Company Number: US-BAYER-2015-153894

PATIENT
  Age: 14 Year
  Sex: Female
  Weight: 63.49 kg

DRUGS (2)
  1. ALEVE [Suspect]
     Active Substance: NAPROXEN SODIUM
     Indication: DYSMENORRHOEA
     Dosage: 1 DF, PRN
     Route: 048
     Dates: start: 2012, end: 20150415
  2. INSULIN [Concomitant]
     Active Substance: INSULIN NOS

REACTIONS (1)
  - Blood glucose increased [Not Recovered/Not Resolved]

NARRATIVE: CASE EVENT DATE: 20150415
